FAERS Safety Report 5001061-1 (Version None)
Quarter: 2006Q2

REPORT INFORMATION
  Report Type: 
  Country: None (occurrence: None)
  Receive Date: 20060512
  Receipt Date: 20060317
  Transmission Date: 20061013
  Serious: Yes (Other)
  Sender: FDA-Public Use
  Company Number: US-SANOFI-SYNTHELABO-A03200601497

PATIENT
  Age: 38 Year
  Sex: Female

DRUGS (3)
  1. AMBIEN CR [Suspect]
     Indication: INSOMNIA
     Route: 048
     Dates: start: 20060201, end: 20060401
  2. XANAX [Concomitant]
     Route: 048
  3. EFFEXOR [Concomitant]
     Dosage: UNK
     Route: 048

REACTIONS (4)
  - ROAD TRAFFIC ACCIDENT [None]
  - SOMNOLENCE [None]
  - UNRESPONSIVE TO VERBAL STIMULI [None]
  - WEIGHT INCREASED [None]
